FAERS Safety Report 13929456 (Version 2)
Quarter: 2017Q3

REPORT INFORMATION
  Report Type: Report from Study
  Country: US (occurrence: US)
  Receive Date: 20170901
  Receipt Date: 20170904
  Transmission Date: 20171127
  Serious: Yes (Hospitalization)
  Sender: FDA-Public Use
  Company Number: US-JNJFOC-20170827700

PATIENT
  Age: 19 Year
  Sex: Female
  Weight: 53.9 kg

DRUGS (23)
  1. DIAZEPAM. [Concomitant]
     Active Substance: DIAZEPAM
     Route: 065
  2. NEURONTIN [Concomitant]
     Active Substance: GABAPENTIN
     Route: 065
  3. SIMETHICONE (DIMETHICONE) [Concomitant]
     Active Substance: DIMETHICONE
     Route: 065
  4. ACETAMINOPHEN. [Concomitant]
     Active Substance: ACETAMINOPHEN
     Route: 065
  5. OXYCODONE [Concomitant]
     Active Substance: OXYCODONE
     Route: 065
  6. AZATHIOPRINE. [Concomitant]
     Active Substance: AZATHIOPRINE
     Route: 065
  7. STELARA [Concomitant]
     Active Substance: USTEKINUMAB
     Route: 058
  8. SERTRALINE [Concomitant]
     Active Substance: SERTRALINE HYDROCHLORIDE
     Route: 065
  9. REMICADE [Suspect]
     Active Substance: INFLIXIMAB
     Indication: INFLAMMATORY BOWEL DISEASE
     Route: 042
     Dates: start: 20111115, end: 20120217
  10. OMEPRAZOLE. [Concomitant]
     Active Substance: OMEPRAZOLE
     Route: 065
  11. PERIACTIN [Concomitant]
     Active Substance: CYPROHEPTADINE HYDROCHLORIDE
     Route: 065
  12. FERROUS SULFATE. [Concomitant]
     Active Substance: FERROUS SULFATE
     Route: 065
  13. SUMATRIPTAN. [Concomitant]
     Active Substance: SUMATRIPTAN
     Route: 065
  14. GABAPENTIN. [Concomitant]
     Active Substance: GABAPENTIN
     Route: 065
  15. KETAMINE [Concomitant]
     Active Substance: KETAMINE
     Route: 065
  16. CALCIUM CARBONATE. [Concomitant]
     Active Substance: CALCIUM CARBONATE
     Route: 065
  17. XYLOCAINE [Concomitant]
     Active Substance: LIDOCAINE HYDROCHLORIDE
     Route: 065
  18. LOPERAMIDE [Concomitant]
     Active Substance: LOPERAMIDE
     Route: 065
  19. ONDANSETRON [Concomitant]
     Active Substance: ONDANSETRON
     Route: 065
  20. VOLTAREN [Concomitant]
     Active Substance: DICLOFENAC SODIUM
     Route: 065
  21. HYDROCORTISONE. [Concomitant]
     Active Substance: HYDROCORTISONE
     Route: 065
  22. MIRTAZAPINE. [Concomitant]
     Active Substance: MIRTAZAPINE
     Route: 065
  23. SACCHAROMYCES BOULARDII [Concomitant]
     Active Substance: SACCHAROMYCES CEREVISIAE
     Route: 065

REACTIONS (2)
  - Diarrhoea [Recovered/Resolved]
  - Abdominal pain [Recovered/Resolved]

NARRATIVE: CASE EVENT DATE: 20170818
